FAERS Safety Report 24994947 (Version 2)
Quarter: 2025Q1

REPORT INFORMATION
  Report Type: Spontaneous
  Country: DE (occurrence: DE)
  Receive Date: 20250221
  Receipt Date: 20250306
  Transmission Date: 20250409
  Serious: Yes (Other)
  Sender: REGENERON
  Company Number: DE-BAYER-2025A023316

PATIENT
  Age: 63 Year
  Sex: Male

DRUGS (1)
  1. EYLEA [Suspect]
     Active Substance: AFLIBERCEPT
     Indication: Retinal vein occlusion
     Route: 031
     Dates: start: 20240418, end: 20240829

REACTIONS (5)
  - Blindness [Recovered/Resolved]
  - Retinal vein occlusion [Unknown]
  - Intraocular pressure increased [Recovered/Resolved]
  - Optic nerve disorder [Unknown]
  - Visual impairment [Unknown]

NARRATIVE: CASE EVENT DATE: 20240829
